FAERS Safety Report 8182432-1 (Version None)
Quarter: 2012Q1

REPORT INFORMATION
  Report Type: 
  Country: None (occurrence: None)
  Receive Date: 20120305
  Receipt Date: 20120224
  Transmission Date: 20120608
  Serious: Yes (Hospitalization, Other)
  Sender: FDA-Public Use
  Company Number: US-BIOGENIDEC-2010BI027943

PATIENT
  Age: 28 Year
  Sex: Female

DRUGS (1)
  1. TYSABRI [Suspect]
     Indication: MULTIPLE SCLEROSIS
     Route: 042
     Dates: start: 20070710, end: 20100709

REACTIONS (4)
  - DRUG INTOLERANCE [None]
  - NEUTRALISING ANTIBODIES POSITIVE [None]
  - LEUKAEMIA [None]
  - MULTIPLE SCLEROSIS RELAPSE [None]
